FAERS Safety Report 25713843 (Version 1)
Quarter: 2025Q3

REPORT INFORMATION
  Report Type: Report from Study
  Country: TH (occurrence: TH)
  Receive Date: 20250822
  Receipt Date: 20250822
  Transmission Date: 20251021
  Serious: Yes (Other)
  Sender: HELSINN HEALTHCARE
  Company Number: TH-HBP-2025TH032309

PATIENT
  Sex: Female

DRUGS (1)
  1. AKYNZEO (NETUPITANT\PALONOSETRON HYDROCHLORIDE) [Suspect]
     Active Substance: NETUPITANT\PALONOSETRON HYDROCHLORIDE
     Indication: Prophylaxis of nausea and vomiting
     Route: 048
     Dates: start: 20250723, end: 20250813

REACTIONS (2)
  - Renal failure [Unknown]
  - Drug intolerance [Unknown]
